FAERS Safety Report 25521879 (Version 2)
Quarter: 2025Q3

REPORT INFORMATION
  Report Type: Report from Study
  Country: US (occurrence: US)
  Receive Date: 20250706
  Receipt Date: 20250710
  Transmission Date: 20251020
  Serious: Yes (Death)
  Sender: ABBVIE
  Company Number: US-ABBVIE-6358330

PATIENT
  Age: 73 Year
  Sex: Male

DRUGS (1)
  1. VENETOCLAX [Suspect]
     Active Substance: VENETOCLAX
     Indication: Acute myeloid leukaemia
     Dosage: TAKE 2X10MG TABLETS ALONG WITH 1X50MG TABLET (70MG TOTAL) BY MOUTH DAILY ON DAYS 1-21 AS DIRECTED.
     Route: 048

REACTIONS (1)
  - Death [Fatal]
